FAERS Safety Report 7677532-6 (Version None)
Quarter: 2011Q3

REPORT INFORMATION
  Report Type: 
  Country: None (occurrence: None)
  Receive Date: 20110811
  Receipt Date: 20110804
  Transmission Date: 20111222
  Serious: Yes (Other)
  Sender: FDA-Public Use
  Company Number: CA-CELGENEUS-028-C5013-11080706

PATIENT
  Sex: Male
  Weight: 91 kg

DRUGS (16)
  1. GLICLAZIDE [Concomitant]
     Dosage: 30 MILLIGRAM
     Route: 048
     Dates: start: 20110515
  2. ACETAMINOPHEN [Concomitant]
     Dosage: 2 TABLET
     Route: 048
     Dates: start: 20110315
  3. DEXAMETHASONE [Suspect]
     Indication: MULTIPLE MYELOMA
     Dosage: 20 MILLIGRAM
     Route: 065
     Dates: start: 20090723, end: 20110104
  4. RAMIPRIL [Concomitant]
     Indication: HYPERTENSION
     Dosage: 10 MILLIGRAM
     Route: 048
  5. AZITHROMYCIN [Concomitant]
     Indication: GOUT
     Dosage: 250 MILLIGRAM
     Route: 048
     Dates: start: 20100202
  6. VITAMIN D [Concomitant]
     Indication: BONE DISORDER
     Dosage: 800 IU (INTERNATIONAL UNIT)
     Route: 048
     Dates: start: 20101207
  7. HYDROCHLOROTHIAZIDE [Concomitant]
     Indication: HYPERTENSION
     Dosage: 25 MILLIGRAM
     Route: 048
  8. CALCIUM CARBONATE [Concomitant]
     Indication: BONE DISORDER
     Dosage: 1500 MILLIGRAM
     Route: 048
     Dates: start: 20101207
  9. ACETAMINOPHEN [Concomitant]
     Indication: BACK PAIN
     Dosage: 2 TABLET
     Route: 048
     Dates: start: 20110315
  10. LENALIDOMIDE [Suspect]
     Indication: MULTIPLE MYELOMA
     Dosage: 25 MILLIGRAM
     Route: 048
     Dates: start: 20090723, end: 20110103
  11. CIMETIDINE [Concomitant]
     Dosage: 400 MILLIGRAM
     Route: 048
  12. AREDIA [Concomitant]
     Dosage: 90 MILLIGRAM
     Route: 041
     Dates: start: 20110104
  13. CALCIUM CARBONATE [Concomitant]
  14. AREDIA [Concomitant]
     Indication: BONE DISORDER
  15. CODEINE SULFATE [Concomitant]
     Indication: BACK PAIN
     Dosage: 30 MILLIGRAM
     Route: 048
     Dates: start: 20110315
  16. CODEINE SULFATE [Concomitant]
     Indication: PAIN
     Dosage: 30 MILLIGRAM
     Route: 048
     Dates: start: 20110711

REACTIONS (1)
  - COLON CANCER [None]
